FAERS Safety Report 9619855 (Version 1)
Quarter: 2013Q4

REPORT INFORMATION
  Report Type: Spontaneous
  Country: US (occurrence: US)
  Receive Date: 20131014
  Receipt Date: 20131014
  Transmission Date: 20140711
  Serious: No
  Sender: FDA-Public Use
  Company Number: US-BAYER-2013-123970

PATIENT
  Sex: Female

DRUGS (1)
  1. MIDOL EXTENDED RELIEF CAPLET [Suspect]
     Dosage: UNK DF, UNK

REACTIONS (1)
  - Pre-existing condition improved [None]
